FAERS Safety Report 5222577-9 (Version None)
Quarter: 2007Q1

REPORT INFORMATION
  Report Type: 
  Country: None (occurrence: None)
  Receive Date: 20070129
  Receipt Date: 20070116
  Transmission Date: 20070707
  Serious: Yes (Hospitalization, Other)
  Sender: FDA-Public Use
  Company Number: US-SHR-US-2006-014533

PATIENT
  Age: 55 Year
  Sex: Female
  Weight: 63.492 kg

DRUGS (8)
  1. BETASERON [Suspect]
     Indication: SECONDARY PROGRESSIVE MULTIPLE SCLEROSIS
     Dosage: 8 MIU, EVERY 2D
     Route: 058
     Dates: start: 20061204
  2. BETASERON [Suspect]
     Dosage: 8 MIU, EVERY 2D
     Route: 058
     Dates: start: 20051001
  3. DETROL LA [Concomitant]
     Dosage: 4 MG, UNK
     Route: 048
     Dates: start: 20061212
  4. DEXTROAMPHETAMINE [Concomitant]
     Indication: FATIGUE
     Dosage: 10 MG, UNK
     Route: 048
     Dates: start: 20040101
  5. LEVOTHYROXINE SODIUM [Concomitant]
     Indication: THYROID DISORDER
     Dosage: .1 MG, UNK
     Route: 048
     Dates: start: 19900101
  6. ALPRAZOLAM [Concomitant]
     Indication: ANXIETY
     Dosage: 1 MG, UNK
     Route: 048
     Dates: start: 20000101
  7. LEXAPRO [Concomitant]
     Indication: DEPRESSION
     Dosage: 20 MG, UNK
     Route: 048
     Dates: start: 20060101
  8. PREMPRO [Concomitant]
     Dosage: 0.625/25
     Route: 048
     Dates: start: 20010101

REACTIONS (19)
  - AUTOMATIC BLADDER [None]
  - CLOSTRIDIUM DIFFICILE COLITIS [None]
  - COLON CANCER [None]
  - DYSPHAGIA [None]
  - FALL [None]
  - GALLBLADDER DISORDER [None]
  - GASTROENTERITIS BACTERIAL [None]
  - HERNIA REPAIR [None]
  - INTERVERTEBRAL DISC PROTRUSION [None]
  - MULTIPLE SCLEROSIS [None]
  - NICOTINE DEPENDENCE [None]
  - PAIN [None]
  - PELVIC FRACTURE [None]
  - POST PROCEDURAL INFECTION [None]
  - PUPILLARY REFLEX IMPAIRED [None]
  - RIB FRACTURE [None]
  - SOFT TISSUE INJURY [None]
  - SPINAL FRACTURE [None]
  - WAIST CIRCUMFERENCE INCREASED [None]
